FAERS Safety Report 6533862-2 (Version None)
Quarter: 2010Q1

REPORT INFORMATION
  Report Type: 
  Country: None (occurrence: None)
  Receive Date: 20100111
  Receipt Date: 20090922
  Transmission Date: 20100710
  Serious: No
  Sender: FDA-Public Use
  Company Number: US-ABBOTT-09P-163-0599341-00

PATIENT
  Age: 81 Year
  Sex: Male

DRUGS (1)
  1. VICODIN [Suspect]
     Indication: ANALGESIC THERAPY
     Dates: start: 19940101, end: 19940101

REACTIONS (3)
  - DYSPEPSIA [None]
  - HYPERSENSITIVITY [None]
  - VOMITING [None]
